FAERS Safety Report 12249164 (Version 1)
Quarter: 2016Q2

REPORT INFORMATION
  Report Type: Spontaneous
  Country: US (occurrence: US)
  Receive Date: 20160408
  Receipt Date: 20160408
  Transmission Date: 20160815
  Serious: Yes (Hospitalization, Other)
  Sender: FDA-Public Use
  Company Number: US-PFIZER INC-2016194984

PATIENT
  Age: 63 Year
  Sex: Male

DRUGS (1)
  1. TEMSIROLIMUS [Suspect]
     Active Substance: TEMSIROLIMUS
     Indication: METASTATIC RENAL CELL CARCINOMA
     Dosage: UNK

REACTIONS (6)
  - Gastrointestinal wall thickening [Unknown]
  - Rectal haemorrhage [Unknown]
  - Abdominal pain [Unknown]
  - Colitis [Unknown]
  - Deep vein thrombosis [Unknown]
  - Anaemia [Unknown]
